FAERS Safety Report 24528787 (Version 2)
Quarter: 2024Q4

REPORT INFORMATION
  Report Type: Spontaneous
  Country: MX (occurrence: MX)
  Receive Date: 20241021
  Receipt Date: 20241104
  Transmission Date: 20250115
  Serious: Yes (Other)
  Sender: BAYER HEALTHCARE PHARMACEUTICALS INC.
  Company Number: MX-BAYER-2024A149850

PATIENT
  Sex: Male

DRUGS (1)
  1. FINERENONE [Suspect]
     Active Substance: FINERENONE
     Dosage: 20 MG

REACTIONS (4)
  - Blood creatinine increased [Not Recovered/Not Resolved]
  - Weight increased [None]
  - Blood pressure abnormal [None]
  - Gouty arthritis [None]
